FAERS Safety Report 9297505 (Version 1)
Quarter: 2013Q2

REPORT INFORMATION
  Report Type: Spontaneous
  Country: US (occurrence: US)
  Receive Date: 20130520
  Receipt Date: 20130520
  Transmission Date: 20140414
  Serious: Yes (Hospitalization)
  Sender: FDA-Public Use
  Company Number: US-SANOFI-AVENTIS-2013SA049606

PATIENT
  Age: 56 Year
  Sex: Male

DRUGS (7)
  1. LANTUS [Suspect]
  2. LANTUS SOLOSTAR [Suspect]
     Indication: DIABETES MELLITUS
     Dosage: THERAPY START DATE - 9 YEARS AGO DOSE:32 UNIT(S)
     Route: 051
  3. LANTUS SOLOSTAR [Suspect]
     Indication: DIABETES MELLITUS
     Dosage: THERAPY START DATE - 9 YEARS AGO DOSE:32 UNIT(S)
     Route: 051
  4. LANTUS SOLOSTAR [Suspect]
     Indication: DIABETES MELLITUS
     Dosage: THERAPY START DATE - 9 YEARS AGO DOSE:32 UNIT(S)
     Route: 051
  5. SOLOSTAR [Suspect]
     Indication: DIABETES MELLITUS
     Dosage: THERAPY START DATE - 9 YEARS
  6. SOLOSTAR [Suspect]
     Indication: DIABETES MELLITUS
     Dosage: THERAPY START DATE - 9 YEARS
  7. SOLOSTAR [Suspect]
     Indication: DIABETES MELLITUS
     Dosage: THERAPY START DATE - 9 YEARS

REACTIONS (1)
  - Renal disorder [Unknown]
